FAERS Safety Report 8173714-8 (Version None)
Quarter: 2012Q1

REPORT INFORMATION
  Report Type: 
  Country: None (occurrence: None)
  Receive Date: 20120229
  Receipt Date: 20120227
  Transmission Date: 20120608
  Serious: Yes (Death, Hospitalization)
  Sender: FDA-Public Use
  Company Number: US-ACTELION-A-US2012-59973

PATIENT

DRUGS (6)
  1. OXYGEN [Concomitant]
  2. NITROGLYCERIN [Concomitant]
  3. DIGOXIN [Concomitant]
  4. VENTAVIS [Suspect]
     Indication: PULMONARY ARTERIAL HYPERTENSION
     Dosage: 5 UG, 6-9X/DAY
     Route: 055
     Dates: start: 20101213, end: 20120101
  5. REVATIO [Concomitant]
  6. COUMADIN [Concomitant]

REACTIONS (4)
  - HEPATIC CONGESTION [None]
  - RIGHT VENTRICULAR FAILURE [None]
  - JAUNDICE [None]
  - DEATH [None]
